FAERS Safety Report 15462940 (Version 1)
Quarter: 2018Q4

REPORT INFORMATION
  Report Type: Spontaneous
  Country: US (occurrence: US)
  Receive Date: 20181004
  Receipt Date: 20181004
  Transmission Date: 20190204
  Serious: No
  Sender: FDA-Public Use
  Company Number: US-PFIZER INC-2018398278

PATIENT
  Age: 62 Year
  Sex: Female
  Weight: 66.21 kg

DRUGS (1)
  1. IBRANCE [Suspect]
     Active Substance: PALBOCICLIB
     Indication: BREAST CANCER FEMALE
     Dosage: 125 MG, CYCLIC (DAILY X21 DAYS THEN 7 DAYS OFF)
     Route: 048
     Dates: start: 2017

REACTIONS (2)
  - Blood disorder [Unknown]
  - Full blood count increased [Unknown]
